FAERS Safety Report 5335345-4 (Version None)
Quarter: 2007Q2

REPORT INFORMATION
  Report Type: 
  Country: None (occurrence: None)
  Receive Date: 20070525
  Receipt Date: 20070514
  Transmission Date: 20071010
  Serious: Yes (Hospitalization)
  Sender: FDA-Public Use
  Company Number: FR-PFIZER INC-2007039129

PATIENT
  Age: 63 Year
  Sex: Male

DRUGS (11)
  1. DOXORUBICIN [Suspect]
     Indication: NEUROENDOCRINE CARCINOMA
     Dosage: DAILY DOSE:37.8MG-FREQ:DAILY
     Route: 042
  2. ETOPOSIDE [Suspect]
     Indication: NEUROENDOCRINE CARCINOMA
     Dosage: DAILY DOSE:90.6MG-FREQ:DAILY
     Route: 042
  3. ENDOXAN [Suspect]
     Indication: NEUROENDOCRINE CARCINOMA
     Dosage: DAILY DOSE:755MG-FREQ:DAILY
     Route: 042
  4. CALCIDOSE [Concomitant]
  5. PREGABALIN [Concomitant]
  6. ARGININE [Concomitant]
  7. RIVOTRIL [Concomitant]
  8. VERAPAMIL [Concomitant]
  9. ZOLPIDEM TARTRATE [Concomitant]
  10. FERROUS SULFATE/FOLIC ACID [Concomitant]
  11. ASCORBIC ACID [Concomitant]

REACTIONS (3)
  - ACUTE PULMONARY OEDEMA [None]
  - MYOCARDIAL ISCHAEMIA [None]
  - VENTRICULAR EXTRASYSTOLES [None]
